FAERS Safety Report 17927969 (Version 1)
Quarter: 2020Q2

REPORT INFORMATION
  Report Type: Report from Study
  Country: US (occurrence: US)
  Receive Date: 20200623
  Receipt Date: 20200623
  Transmission Date: 20200714
  Serious: Yes (Other)
  Sender: FDA-Public Use
  Company Number: US-TEVA-2020-US-1790207

PATIENT
  Age: 59 Year
  Sex: Male

DRUGS (4)
  1. BIVALIRUDIN. [Suspect]
     Active Substance: BIVALIRUDIN
     Dosage: 0.3MG/KG
     Route: 040
  2. WARFARIN [Suspect]
     Active Substance: WARFARIN
     Indication: ANTICOAGULANT THERAPY
     Route: 048
  3. BIVALIRUDIN. [Suspect]
     Active Substance: BIVALIRUDIN
     Indication: ANTICOAGULANT THERAPY
     Dosage: 0.75MG/KG
     Route: 040
  4. BIVALIRUDIN. [Suspect]
     Active Substance: BIVALIRUDIN
     Dosage: 42 MG/KG DAILY;
     Route: 041

REACTIONS (1)
  - Pericardial effusion [Recovered/Resolved]
